FAERS Safety Report 8925554 (Version 1)
Quarter: 2012Q4

REPORT INFORMATION
  Report Type: 
  Country: US (occurrence: US)
  Receive Date: 20121126
  Receipt Date: 20121126
  Transmission Date: 20130627
  Serious: Yes (Other)
  Sender: FDA-Public Use
  Company Number: CHPA2012US023698

PATIENT
  Age: 81 Year
  Sex: Female

DRUGS (1)
  1. COMTREX MAXIMUM STRENGTH COLD AND COUGH NON-DROWSY [Suspect]
     Indication: NASOPHARYNGITIS
     Dosage: 2 DF, Q4H, PRN
     Route: 048
     Dates: start: 2002

REACTIONS (7)
  - Cystitis [Recovered/Resolved]
  - Herpes zoster [Recovered/Resolved]
  - Activities of daily living impaired [Recovered/Resolved]
  - Vertigo [Recovered/Resolved]
  - Feeling abnormal [Recovered/Resolved]
  - Therapeutic response unexpected [Unknown]
  - Off label use [Unknown]
